FAERS Safety Report 5132642-2 (Version None)
Quarter: 2006Q4

REPORT INFORMATION
  Report Type: 
  Country: None (occurrence: None)
  Receive Date: 20061017
  Receipt Date: 20061006
  Transmission Date: 20070319
  Serious: Yes (Hospitalization)
  Sender: FDA-Public Use
  Company Number: GXKR2006GB06251

PATIENT
  Age: 35 Year
  Sex: Male

DRUGS (3)
  1. ASPIRIN [Suspect]
     Indication: BACK PAIN
     Dosage: 600 MG, ORAL
     Route: 048
     Dates: start: 20060918, end: 20060918
  2. OMEPRAZOLE [Concomitant]
  3. SALBUTAMOL (SALBUTAMOL) [Concomitant]

REACTIONS (4)
  - ANAPHYLACTIC REACTION [None]
  - DYSPNOEA [None]
  - RASH [None]
  - SWELLING FACE [None]
